FAERS Safety Report 10157736 (Version 1)
Quarter: 2014Q2

REPORT INFORMATION
  Report Type: Spontaneous
  Country: BR (occurrence: BR)
  Receive Date: 20140507
  Receipt Date: 20140507
  Transmission Date: 20141212
  Serious: Yes (Other)
  Sender: FDA-Public Use
  Company Number: BR-SA-2014SA055413

PATIENT
  Age: 53 Year
  Sex: Female
  Weight: 62 kg

DRUGS (7)
  1. LANTUS [Suspect]
     Indication: TYPE 2 DIABETES MELLITUS
     Dosage: DOSE:108 UI (54 IN THE MORNING AND 54 AT NIGHT)
     Route: 065
     Dates: start: 2010
  2. LOSARTAN [Concomitant]
     Indication: PROPHYLAXIS
  3. PIOGLITAZONE [Concomitant]
     Indication: BLOOD GLUCOSE
     Dates: start: 201403
  4. PURAN  T4 [Concomitant]
     Indication: THYROID DISORDER
     Dosage: STRENGTH: 100 MCG?APPROXIMATELY 2 YEARS AGO
     Dates: start: 2012
  5. CIPROFIBRATE [Concomitant]
     Indication: BLOOD TRIGLYCERIDES
     Dosage: APPROXIMATELY 12 YEARS AGO
     Dates: start: 2002
  6. GLIFAGE [Concomitant]
     Indication: TYPE 2 DIABETES MELLITUS
     Dosage: APPROXIMATELY 2 YEARS AGO
     Dates: start: 2012
  7. CLIKSTAR [Concomitant]
     Dates: start: 2010

REACTIONS (3)
  - Nephrolithiasis [Recovering/Resolving]
  - Catheter placement [Unknown]
  - Off label use [Unknown]
